FAERS Safety Report 9802106 (Version 3)
Quarter: 2014Q1

REPORT INFORMATION
  Report Type: Spontaneous
  Country: JP (occurrence: JP)
  Receive Date: 20140107
  Receipt Date: 20140210
  Transmission Date: 20141002
  Serious: Yes (Hospitalization)
  Sender: FDA-Public Use
  Company Number: JP-TEVA-453084ISR

PATIENT
  Age: 92 Year
  Sex: Female

DRUGS (8)
  1. CETIRIZINE HYDROCHLORIDE TAB [Suspect]
     Indication: ECZEMA ASTEATOTIC
     Dosage: 10 MILLIGRAM DAILY;
     Route: 048
     Dates: start: 20131128, end: 20131212
  2. BLADDERON [Suspect]
     Indication: POLLAKIURIA
     Dosage: 600 MILLIGRAM DAILY;
     Route: 048
     Dates: start: 20131024, end: 20131212
  3. NEUROVITAN TABLETS [Suspect]
     Dosage: 3 DOSAGE FORMS DAILY;
     Route: 048
     Dates: start: 20131114, end: 20131212
  4. MICARDIS TABLETS (BLIND) [Suspect]
     Indication: CARDIAC FAILURE
     Route: 048
  5. AMLODIPINE [Concomitant]
     Indication: HYPERTENSION
     Dosage: 2.5 MILLIGRAM DAILY;
     Route: 048
  6. GOODMIN [Concomitant]
     Indication: INSOMNIA
     Dosage: .375 MILLIGRAM DAILY;
     Route: 048
  7. ASPARA [Concomitant]
     Indication: OSTEOPOROSIS
     Dosage: 600 MILLIGRAM DAILY;
     Route: 048
  8. NIZATIDINE [Concomitant]
     Indication: GASTRIC ULCER
     Dosage: 150 MILLIGRAM DAILY;
     Route: 048

REACTIONS (2)
  - Liver disorder [Recovering/Resolving]
  - Rash [Recovering/Resolving]
